FAERS Safety Report 24125399 (Version 1)
Quarter: 2024Q3

REPORT INFORMATION
  Report Type: Spontaneous
  Country: UA (occurrence: UA)
  Receive Date: 20240723
  Receipt Date: 20240723
  Transmission Date: 20241017
  Serious: Yes (Hospitalization)
  Sender: STRIDES
  Company Number: UA-STRIDES ARCOLAB LIMITED-2024SP008943

PATIENT
  Age: 5 Decade
  Sex: Female

DRUGS (12)
  1. PREDNISOLONE [Suspect]
     Active Substance: PREDNISOLONE
     Indication: Systemic lupus erythematosus
     Dosage: 7.5 MILLIGRAM, QD
     Route: 065
  2. PREDNISOLONE [Suspect]
     Active Substance: PREDNISOLONE
     Dosage: 120 MILLIGRAM
     Route: 042
  3. MYCOPHENOLATE MOFETIL [Suspect]
     Active Substance: MYCOPHENOLATE MOFETIL
     Indication: Proteinuria
     Dosage: UNK
     Route: 065
  4. METHYLPREDNISOLONE [Suspect]
     Active Substance: METHYLPREDNISOLONE
     Indication: Chronic cutaneous lupus erythematosus
     Dosage: 12 MILLIGRAM, QD
     Route: 065
  5. HYDROXYCHLOROQUINE [Concomitant]
     Active Substance: HYDROXYCHLOROQUINE
     Indication: Chronic cutaneous lupus erythematosus
     Dosage: 400 MILLIGRAM, QD
     Route: 065
  6. ASPIRIN [Concomitant]
     Active Substance: ASPIRIN
     Indication: Systemic lupus erythematosus
     Dosage: 81 MILLIGRAM, QD (LOW-DOSE )
     Route: 042
  7. CANDESARTAN [Concomitant]
     Active Substance: CANDESARTAN
     Indication: Antiphospholipid syndrome
     Dosage: 16 MILLIGRAM, QD
     Route: 065
  8. CANDESARTAN [Concomitant]
     Active Substance: CANDESARTAN
     Indication: Anticoagulant therapy
  9. CANDESARTAN [Concomitant]
     Active Substance: CANDESARTAN
     Indication: Hypertension
  10. NEBIVOLOL [Concomitant]
     Active Substance: NEBIVOLOL
     Indication: Antiphospholipid syndrome
     Dosage: 5 MILLIGRAM, QD
     Route: 065
  11. NEBIVOLOL [Concomitant]
     Active Substance: NEBIVOLOL
     Indication: Anticoagulant therapy
  12. NEBIVOLOL [Concomitant]
     Active Substance: NEBIVOLOL
     Indication: Hypertension

REACTIONS (7)
  - Meningeal disorder [Unknown]
  - Cerebral disorder [Unknown]
  - Disseminated tuberculosis [Recovered/Resolved]
  - Tuberculosis [Recovered/Resolved]
  - Meningitis tuberculous [Recovered/Resolved]
  - Therapy non-responder [Unknown]
  - Off label use [Unknown]
